FAERS Safety Report 16834745 (Version 1)
Quarter: 2019Q3

REPORT INFORMATION
  Report Type: Report from Study
  Country: AE (occurrence: AE)
  Receive Date: 20190920
  Receipt Date: 20190920
  Transmission Date: 20191005
  Serious: Yes (Hospitalization)
  Sender: FDA-Public Use
  Company Number: PHHY2019AE030347

PATIENT
  Age: 39 Year
  Sex: Male

DRUGS (2)
  1. ENTRESTO [Suspect]
     Active Substance: SACUBITRIL\VALSARTAN
     Indication: CARDIAC FAILURE
     Dosage: 200 MG (SACUBITRIL 97MG AND VALSARTAN 103MG), BID
     Route: 048
     Dates: start: 20190123, end: 201908
  2. ENTRESTO [Suspect]
     Active Substance: SACUBITRIL\VALSARTAN
     Dosage: 50 MG (SACUBITRIL 24MG AND VALSARTAN 26MG), BID
     Route: 048
     Dates: start: 20190821

REACTIONS (3)
  - Syncope [Recovered/Resolved]
  - Hypotension [Recovered/Resolved]
  - Influenza [Not Recovered/Not Resolved]

NARRATIVE: CASE EVENT DATE: 20190301
